FAERS Safety Report 9179220 (Version 1)
Quarter: 2012Q4

REPORT INFORMATION
  Report Type: 
  Country: US (occurrence: US)
  Receive Date: 20121029
  Receipt Date: 20121029
  Transmission Date: 20130627
  Serious: No
  Sender: FDA-Public Use
  Company Number: US-AMGEN-USASP2012054837

PATIENT
  Age: 55 Year
  Sex: Male
  Weight: 82.72 kg

DRUGS (7)
  1. ENBREL [Suspect]
     Indication: PRODUCT USED FOR UNKNOWN INDICATION
     Dosage: 50 mg, qwk
     Route: 058
  2. AZULFIDINE EN 500 MG [Concomitant]
     Dosage: 500 mg, UNK
  3. LIPITOR [Concomitant]
     Dosage: 10 mg, UNK
  4. ARAVA [Concomitant]
     Dosage: 10 mg, UNK
  5. VITAMIN C                          /00008001/ [Concomitant]
     Dosage: 500 mg, UNK
  6. ASPIRIN (E.C.) [Concomitant]
     Dosage: 81 mg, UNK
  7. FOLIC ACID [Concomitant]
     Dosage: 20 mg, UNK

REACTIONS (2)
  - Injection site rash [Recovered/Resolved]
  - Injection site mass [Recovered/Resolved]
